FAERS Safety Report 6689905-9 (Version None)
Quarter: 2010Q2

REPORT INFORMATION
  Report Type: 
  Country: None (occurrence: None)
  Receive Date: 20100421
  Receipt Date: 20100415
  Transmission Date: 20101027
  Serious: Yes (Other)
  Sender: FDA-Public Use
  Company Number: CHPA2010CA06812

PATIENT
  Age: 47 Year
  Sex: Male
  Weight: 87.982 kg

DRUGS (2)
  1. OTRIVIN [Suspect]
     Indication: NASAL CONGESTION
     Dosage: 1 SPRAY, QHS
     Route: 045
  2. GRAVOL TAB [Concomitant]
     Indication: INSOMNIA
     Dosage: UNK, UNK

REACTIONS (2)
  - DRUG DEPENDENCE [None]
  - INTENTIONAL DRUG MISUSE [None]
